FAERS Safety Report 25878163 (Version 1)
Quarter: 2025Q4

REPORT INFORMATION
  Report Type: Spontaneous
  Country: US (occurrence: US)
  Receive Date: 20251003
  Receipt Date: 20251003
  Transmission Date: 20260117
  Serious: Yes (Hospitalization, Other)
  Sender: INSUD PHARMA
  Company Number: US-INSUD PHARMA-2509US08096

PATIENT

DRUGS (1)
  1. TESTOSTERONE [Suspect]
     Active Substance: TESTOSTERONE
     Indication: Transgender hormonal therapy
     Dosage: UNK
     Route: 065

REACTIONS (6)
  - Neurotoxicity [Recovered/Resolved]
  - Contrast media toxicity [Recovered/Resolved]
  - Aphasia [Recovered/Resolved]
  - Neurologic neglect syndrome [Recovered/Resolved]
  - Asthenia [Recovered/Resolved]
  - Generalised tonic-clonic seizure [Recovered/Resolved]
